FAERS Safety Report 24211944 (Version 1)
Quarter: 2024Q3

REPORT INFORMATION
  Report Type: Spontaneous
  Country: US (occurrence: US)
  Receive Date: 20240814
  Receipt Date: 20240814
  Transmission Date: 20241016
  Serious: No
  Sender: BRISTOL MYERS SQUIBB
  Company Number: US-BRISTOL-MYERS SQUIBB COMPANY-2024-128889

PATIENT
  Age: 92 Year
  Sex: Female
  Weight: 68.49 kg

DRUGS (1)
  1. REVLIMID [Suspect]
     Active Substance: LENALIDOMIDE
     Indication: Follicular lymphoma
     Dosage: ONCE DAILY FOR 21 DAYS
     Route: 048
     Dates: start: 20240701

REACTIONS (3)
  - Malaise [Unknown]
  - Oropharyngeal pain [Unknown]
  - Burning sensation [Unknown]
